FAERS Safety Report 25191462 (Version 1)
Quarter: 2025Q2

REPORT INFORMATION
  Report Type: Spontaneous
  Country: US (occurrence: None)
  Receive Date: 20250411
  Receipt Date: 20250411
  Transmission Date: 20250717
  Serious: No
  Sender: FDA-CTU
  Company Number: None

PATIENT
  Sex: Female

DRUGS (2)
  1. HADLIMA [Suspect]
     Active Substance: ADALIMUMAB-BWWD
     Indication: Rheumatoid arthritis
     Route: 058
     Dates: start: 20240226, end: 20250315
  2. HADLIMA [Concomitant]
     Active Substance: ADALIMUMAB-BWWD
     Dates: start: 20240226, end: 20250315

REACTIONS (5)
  - Asthma [None]
  - Rheumatoid arthritis [None]
  - Migraine [None]
  - Abdominal pain [None]
  - Diarrhoea [None]
